FAERS Safety Report 5956648-6 (Version None)
Quarter: 2008Q4

REPORT INFORMATION
  Report Type: 
  Country: None (occurrence: None)
  Receive Date: 20081104
  Receipt Date: 20080512
  Transmission Date: 20090506
  Serious: No
  Sender: FDA-Public Use
  Company Number: 08H-163-0314272-00

PATIENT
  Age: 26 Year
  Sex: Female
  Weight: 61 kg

DRUGS (5)
  1. VANCOMYCIN HCL [Suspect]
     Indication: PROPHYLAXIS
     Dosage: 1 GM, ONCE, INTRAVENOUS
     Route: 042
     Dates: start: 20080508, end: 20080508
  2. LEVAQUIN [Concomitant]
  3. LACTATED RINGER'S (RINGER-LACTATE /01126301/) [Concomitant]
  4. SODIUM CHLORIDE ADD-VANTATE SOLUTION (SODIUM CHLORIDE SOLUTION) (SODIU [Concomitant]
  5. VERSED [Concomitant]

REACTIONS (2)
  - ERYTHEMA [None]
  - URTICARIA [None]
